FAERS Safety Report 6538817-X (Version None)
Quarter: 2010Q1

REPORT INFORMATION
  Report Type: 
  Country: None (occurrence: None)
  Receive Date: 20100114
  Receipt Date: 20100114
  Transmission Date: 20100710
  Serious: Yes (Hospitalization)
  Sender: FDA-Public Use
  Company Number: None

PATIENT
  Sex: Male
  Weight: 72.6 kg

DRUGS (6)
  1. PEG-L-ASPARAGINASE (K-H) [Suspect]
     Dosage: 2500 IU
  2. VINCRISTINE SULFATE [Suspect]
     Dosage: 8 MG
  3. CYTARABINE [Suspect]
     Dosage: 70 MG
  4. DAUNORUBICIN HCL [Suspect]
     Dosage: 184 MG
  5. METHOTREXATE [Suspect]
     Dosage: 30 MG
  6. METHYLPREDNISOLONE [Suspect]
     Dosage: 2220 MG

REACTIONS (4)
  - ACTIVATED PARTIAL THROMBOPLASTIN TIME PROLONGED [None]
  - BLOOD FIBRINOGEN DECREASED [None]
  - DEEP VEIN THROMBOSIS [None]
  - PROTHROMBIN TIME PROLONGED [None]
